FAERS Safety Report 9054796 (Version 2)
Quarter: 2013Q1

REPORT INFORMATION
  Report Type: Spontaneous
  Country: CA (occurrence: CA)
  Receive Date: 20130208
  Receipt Date: 20130301
  Transmission Date: 20140127
  Serious: Yes (Hospitalization, Other)
  Sender: FDA-Public Use
  Company Number: CA-ABBOTT-13P-028-1045379-00

PATIENT
  Age: 21 None
  Sex: Male

DRUGS (4)
  1. BIAXIN XL [Suspect]
     Indication: BRONCHITIS
     Dates: start: 201102, end: 201102
  2. CANNABIS SATIVA SUBSP. INDICA TOP [Suspect]
     Indication: PRODUCT USED FOR UNKNOWN INDICATION
     Dosage: REGULARLY
  3. UNSPECIFIED SYRUP [Suspect]
     Indication: PRODUCT USED FOR UNKNOWN INDICATION
  4. NASONEX [Concomitant]
     Indication: BRONCHITIS
     Dates: start: 201102

REACTIONS (32)
  - Feeling abnormal [Unknown]
  - Psychotic disorder [Unknown]
  - Dreamy state [Unknown]
  - Visual acuity reduced [Unknown]
  - Photophobia [Unknown]
  - Ocular hyperaemia [Unknown]
  - Pupillary deformity [Unknown]
  - Laceration [Unknown]
  - Feeling abnormal [Unknown]
  - Hallucination, auditory [Unknown]
  - Anger [Unknown]
  - Cataract [Unknown]
  - Hallucination, visual [Unknown]
  - Procedural haemorrhage [Unknown]
  - Cough [Unknown]
  - Eye injury [Unknown]
  - Crying [Unknown]
  - Vomiting [Unknown]
  - Nausea [Unknown]
  - Pain [Unknown]
  - Confusional state [Unknown]
  - Thinking abnormal [Unknown]
  - Disturbance in attention [Unknown]
  - Insomnia [Unknown]
  - Euphoric mood [Unknown]
  - Delusion of grandeur [Unknown]
  - Disorientation [Unknown]
  - Aggression [Unknown]
  - Anxiety [Unknown]
  - Somnolence [Unknown]
  - Abnormal behaviour [Unknown]
  - Speech disorder [Unknown]
